FAERS Safety Report 9846371 (Version 1)
Quarter: 2014Q1

REPORT INFORMATION
  Report Type: Spontaneous
  Country: IT (occurrence: IT)
  Receive Date: 20140127
  Receipt Date: 20140127
  Transmission Date: 20141002
  Serious: Yes (Hospitalization, Other)
  Sender: FDA-Public Use
  Company Number: IT-BAYER-2014-013601

PATIENT
  Age: 31 Year
  Sex: Female

DRUGS (4)
  1. ACETYLSALICYLIC ACID({=100 MG) [Suspect]
     Indication: PROPHYLAXIS
  2. INSULIN [Concomitant]
     Indication: TYPE 1 DIABETES MELLITUS
  3. METHYLDOPA [Concomitant]
     Indication: BLOOD PRESSURE MANAGEMENT
  4. AMINO ACID [Concomitant]
     Indication: SUPPLEMENTATION THERAPY

REACTIONS (4)
  - Exposure during pregnancy [None]
  - Nephrotic syndrome [None]
  - Premature rupture of membranes [None]
  - Premature delivery [None]
